FAERS Safety Report 23863521 (Version 9)
Quarter: 2025Q3

REPORT INFORMATION
  Report Type: Report from Study
  Country: CA (occurrence: CA)
  Receive Date: 20240516
  Receipt Date: 20250917
  Transmission Date: 20251020
  Serious: Yes (Other)
  Sender: PFIZER
  Company Number: CA-TAKEDA-2022TUS046404

PATIENT
  Age: 62 Year
  Sex: Female

DRUGS (32)
  1. PANTOPRAZOLE MAGNESIUM [Suspect]
     Active Substance: PANTOPRAZOLE MAGNESIUM
     Route: 048
     Dates: start: 20040501
  2. ENTYVIO [Suspect]
     Active Substance: VEDOLIZUMAB
     Indication: Colitis ulcerative
     Route: 042
     Dates: start: 20220330
  3. ENTYVIO [Suspect]
     Active Substance: VEDOLIZUMAB
     Route: 042
  4. ENTYVIO [Suspect]
     Active Substance: VEDOLIZUMAB
     Route: 042
  5. ENTYVIO [Suspect]
     Active Substance: VEDOLIZUMAB
     Route: 042
  6. ENTYVIO [Suspect]
     Active Substance: VEDOLIZUMAB
     Route: 042
  7. ENTYVIO [Suspect]
     Active Substance: VEDOLIZUMAB
     Route: 042
  8. ENTYVIO [Suspect]
     Active Substance: VEDOLIZUMAB
     Route: 042
  9. ENTYVIO [Suspect]
     Active Substance: VEDOLIZUMAB
     Route: 042
  10. ENTYVIO [Suspect]
     Active Substance: VEDOLIZUMAB
     Route: 042
  11. ENTYVIO [Suspect]
     Active Substance: VEDOLIZUMAB
     Route: 042
  12. ENTYVIO [Suspect]
     Active Substance: VEDOLIZUMAB
     Route: 042
  13. ENTYVIO [Suspect]
     Active Substance: VEDOLIZUMAB
     Route: 042
  14. ENTYVIO [Suspect]
     Active Substance: VEDOLIZUMAB
     Route: 042
  15. ENTYVIO [Suspect]
     Active Substance: VEDOLIZUMAB
     Route: 042
  16. ENTYVIO [Suspect]
     Active Substance: VEDOLIZUMAB
     Route: 042
  17. ENTYVIO [Suspect]
     Active Substance: VEDOLIZUMAB
     Route: 042
  18. CELECOXIB [Concomitant]
     Active Substance: CELECOXIB
     Route: 048
     Dates: start: 20040501
  19. GLUMETZA [Concomitant]
     Active Substance: METFORMIN HYDROCHLORIDE
     Route: 048
     Dates: start: 20040501
  20. DAPAGLIFLOZIN [Concomitant]
     Active Substance: DAPAGLIFLOZIN
     Route: 048
     Dates: start: 20190501
  21. CRESTOR [Concomitant]
     Active Substance: ROSUVASTATIN CALCIUM
     Route: 048
     Dates: start: 20220601
  22. FISH OIL [Concomitant]
     Active Substance: FISH OIL
     Route: 048
     Dates: start: 20040101
  23. MAGNESIUM [Concomitant]
     Active Substance: MAGNESIUM
     Route: 048
     Dates: start: 20160501
  24. OZEMPIC [Concomitant]
     Active Substance: SEMAGLUTIDE
  25. OZEMPIC [Concomitant]
     Active Substance: SEMAGLUTIDE
     Route: 058
     Dates: start: 20221101
  26. ASPIRIN [Concomitant]
     Active Substance: ASPIRIN
     Route: 048
     Dates: start: 20190101
  27. FERROUS SULFATE [Concomitant]
     Active Substance: FERROUS SULFATE
     Route: 048
     Dates: start: 20240117
  28. IMURAN [Concomitant]
     Active Substance: AZATHIOPRINE
     Dates: start: 20210915
  29. IMURAN [Concomitant]
     Active Substance: AZATHIOPRINE
     Route: 048
     Dates: start: 20220301, end: 20221124
  30. PENTASA [Concomitant]
     Active Substance: MESALAMINE
     Dosage: 4 GRAM, QD
     Dates: start: 202103
  31. PENTASA [Concomitant]
     Active Substance: MESALAMINE
     Route: 048
     Dates: start: 20220301, end: 20221124
  32. CITALOPRAM [Concomitant]
     Active Substance: CITALOPRAM

REACTIONS (1)
  - Blood pressure increased [Recovering/Resolving]
